FAERS Safety Report 8004744-4 (Version None)
Quarter: 2011Q4

REPORT INFORMATION
  Report Type: 
  Country: None (occurrence: None)
  Receive Date: 20111223
  Receipt Date: 20111221
  Transmission Date: 20120403
  Serious: Yes (Death)
  Sender: FDA-Public Use
  Company Number: US-CELGENEUS-163-21880-11122700

PATIENT
  Sex: Female

DRUGS (7)
  1. CELEXA [Concomitant]
     Route: 065
  2. ALLOPURINOL [Concomitant]
     Route: 065
  3. LASIX [Concomitant]
     Route: 065
  4. COREG [Concomitant]
     Route: 065
  5. COUMADIN [Concomitant]
     Route: 065
  6. REVLIMID [Suspect]
     Indication: MULTIPLE MYELOMA
     Dosage: 5 MILLIGRAM
     Route: 048
     Dates: start: 20110901
  7. SYNTHROID [Concomitant]
     Route: 065

REACTIONS (1)
  - DEATH [None]
